FAERS Safety Report 9297217 (Version 3)
Quarter: 2014Q2

REPORT INFORMATION
  Report Type: Report from Study
  Country: DE (occurrence: DE)
  Receive Date: 20130520
  Receipt Date: 20140404
  Transmission Date: 20141212
  Serious: Yes (Hospitalization)
  Sender: FDA-Public Use
  Company Number: DE-009507513-1304DEU015315

PATIENT
  Age: 63 Year
  Sex: Male
  Weight: 96 kg

DRUGS (12)
  1. BORTEZOMIB [Suspect]
     Indication: PLASMA CELL MYELOMA RECURRENT
     Dosage: 2.99 MG, DAILY
     Dates: start: 20130225, end: 20130312
  2. BORTEZOMIB [Suspect]
     Dosage: UNK
     Dates: end: 201304
  3. BORTEZOMIB [Suspect]
     Dosage: 2.78 MG, DAILY
     Dates: start: 20130412, end: 20130412
  4. DOXORUBICIN [Suspect]
     Indication: PLASMA CELL MYELOMA RECURRENT
     Dosage: 20.70 MG, DAILY
     Dates: start: 20130225, end: 20130305
  5. DOXORUBICIN [Suspect]
     Dosage: UNK
     Dates: end: 201304
  6. DOXORUBICIN [Suspect]
     Dosage: 19.26 MG, DAILY
     Dates: start: 20130412, end: 20130412
  7. DEXAMETHASONE [Suspect]
     Indication: PLASMA CELL MYELOMA RECURRENT
     Dosage: 40 MG, DAILY
     Dates: start: 20130225, end: 20130319
  8. DEXAMETHASONE [Suspect]
     Dosage: UNK
     Dates: end: 201304
  9. DEXAMETHASONE [Suspect]
     Dosage: 20 MG, DAILY
     Dates: start: 20130412, end: 20130412
  10. VORINOSTAT [Suspect]
     Indication: PLASMA CELL MYELOMA RECURRENT
     Dosage: 300MG DAILY
     Route: 048
     Dates: start: 20130225, end: 20130315
  11. VORINOSTAT [Suspect]
     Dosage: 300MG DAILY
     Route: 048
     Dates: start: 20130412, end: 20130415
  12. VORINOSTAT [Suspect]
     Dosage: UNK
     Route: 048
     Dates: end: 201304

REACTIONS (3)
  - Pathological fracture [Recovered/Resolved]
  - Fracture [Unknown]
  - Vomiting [Recovered/Resolved]
